FAERS Safety Report 7985775-7 (Version None)
Quarter: 2011Q4

REPORT INFORMATION
  Report Type: 
  Country: None (occurrence: None)
  Receive Date: 20111214
  Receipt Date: 20111201
  Transmission Date: 20120403
  Serious: Yes (Hospitalization)
  Sender: FDA-Public Use
  Company Number: WAES 1111USA03785

PATIENT
  Age: 62 Year
  Sex: Male

DRUGS (1)
  1. ZOLINZA [Suspect]
     Indication: MYCOSIS FUNGOIDES
     Dosage: 400 MG, DAILY, PO
     Route: 048
     Dates: start: 20111107, end: 20111110

REACTIONS (3)
  - STAPHYLOCOCCAL INFECTION [None]
  - DRY MOUTH [None]
  - GLOSSODYNIA [None]
